FAERS Safety Report 13824952 (Version 23)
Quarter: 2025Q1

REPORT INFORMATION
  Report Type: Spontaneous
  Country: US (occurrence: US)
  Receive Date: 20170802
  Receipt Date: 20250310
  Transmission Date: 20250408
  Serious: Yes (Disabling)
  Sender: PFIZER
  Company Number: US-PFIZER INC-2017328453

PATIENT
  Age: 54 Year
  Sex: Female
  Weight: 66.22 kg

DRUGS (4)
  1. PREMPRO [Suspect]
     Active Substance: ESTROGENS, CONJUGATED\MEDROXYPROGESTERONE ACETATE
     Indication: Hormone replacement therapy
     Dosage: 1 DF, DAILY
     Route: 048
     Dates: start: 200610
  2. PREMPRO [Suspect]
     Active Substance: ESTROGENS, CONJUGATED\MEDROXYPROGESTERONE ACETATE
     Dosage: 0.45-1.5MG TABLET ONCE A DAY
     Route: 048
     Dates: start: 2004
  3. ALPRAZOLAM [Concomitant]
     Active Substance: ALPRAZOLAM
     Route: 048
  4. LEVOTHYROXINE [Concomitant]
     Active Substance: LEVOTHYROXINE
     Indication: Thyroid disorder
     Dosage: 11 UG, DAILY (6 DAYS A WEEK)
     Dates: start: 1998

REACTIONS (2)
  - Back disorder [Not Recovered/Not Resolved]
  - Condition aggravated [Not Recovered/Not Resolved]

NARRATIVE: CASE EVENT DATE: 20140101
